FAERS Safety Report 9169647 (Version 3)
Quarter: 2013Q3

REPORT INFORMATION
  Report Type: Spontaneous
  Country: US (occurrence: US)
  Receive Date: 20130318
  Receipt Date: 20130819
  Transmission Date: 20140515
  Serious: Yes (Death)
  Sender: FDA-Public Use
  Company Number: US-PFIZER INC-2013086147

PATIENT
  Age: 32 Year
  Sex: Male
  Weight: 129.71 kg

DRUGS (5)
  1. ZITHROMAX [Suspect]
     Indication: SINUSITIS
     Dosage: 2 PILLS, UNK
     Dates: start: 20031213
  2. LORTAB [Concomitant]
     Dosage: UNK
  3. HYDROCODONE [Concomitant]
     Dosage: UNK
  4. EPHEDRINE [Concomitant]
  5. PSEUDOEPHEDRINE [Concomitant]

REACTIONS (2)
  - Myocarditis [Fatal]
  - Cardiac failure congestive [Fatal]
